FAERS Safety Report 7972641-6 (Version None)
Quarter: 2011Q4

REPORT INFORMATION
  Report Type: 
  Country: None (occurrence: None)
  Receive Date: 20111213
  Receipt Date: 20111205
  Transmission Date: 20120403
  Serious: Yes (Other)
  Sender: FDA-Public Use
  Company Number: JP-JNJFOC-20111201645

PATIENT
  Age: 14 Year
  Sex: Female

DRUGS (2)
  1. TRAMADOL HYDROCHLORIDE/ACETAMINOPHEN [Suspect]
     Indication: PAIN
     Dosage: 1 DF 2 PER DAY
     Route: 048
     Dates: start: 20111121, end: 20111127
  2. TRAMADOL HYDROCHLORIDE/ACETAMINOPHEN [Suspect]
     Dosage: 2 DOSES 2 TIMES A DAY
     Route: 048
     Dates: start: 20111128

REACTIONS (4)
  - TUBULOINTERSTITIAL NEPHRITIS [None]
  - BLOOD CREATININE INCREASED [None]
  - HYPERHIDROSIS [None]
  - CONSTIPATION [None]
